FAERS Safety Report 24839975 (Version 1)
Quarter: 2025Q1

REPORT INFORMATION
  Report Type: Report from Study
  Country: US (occurrence: US)
  Receive Date: 20250114
  Receipt Date: 20250114
  Transmission Date: 20250409
  Serious: Yes (Other)
  Sender: ROCHE
  Company Number: US-ROCHE-10000175878

PATIENT
  Age: 78 Year
  Sex: Male

DRUGS (1)
  1. ALECENSA [Suspect]
     Active Substance: ALECTINIB HYDROCHLORIDE
     Indication: Neoplasm malignant
     Dosage: TAKE 4 CAPSULES (600MG TOTAL) BY MOUTH TWICE A DAY WITH MEALS
     Route: 048

REACTIONS (2)
  - Pneumonia [Unknown]
  - Gastrointestinal lymphoma [Unknown]
